FAERS Safety Report 7910693-X (Version None)
Quarter: 2011Q4

REPORT INFORMATION
  Report Type: 
  Country: None (occurrence: None)
  Receive Date: 20111111
  Receipt Date: 20111027
  Transmission Date: 20120403
  Serious: Yes (Hospitalization)
  Sender: FDA-Public Use
  Company Number: BE-ROCHE-1003232

PATIENT
  Sex: Female
  Weight: 47 kg

DRUGS (8)
  1. BEFACT FORTE [Concomitant]
     Dates: start: 20060101
  2. BISOPROLOL FUMARATE [Concomitant]
     Indication: HYPERTENSION
     Dates: start: 20060101
  3. ZOMETA [Concomitant]
     Indication: METASTASES TO BONE
     Dates: start: 20010401
  4. INTERFERON ALFA [Suspect]
     Indication: RENAL CELL CARCINOMA
     Dosage: 6 MILLION IU ALTERNATE DAY
     Route: 058
     Dates: start: 20100422, end: 20110929
  5. MAGNESIUM [Concomitant]
     Indication: PARAESTHESIA
     Dates: start: 20100715
  6. ACETAMINOPHEN [Concomitant]
     Indication: INFLUENZA
     Dates: start: 20100422
  7. AVASTIN [Suspect]
     Indication: RENAL CELL CARCINOMA
     Dates: start: 20100422, end: 20101117
  8. PERINDOPRIL ERBUMINE [Concomitant]
     Indication: HYPERTENSION
     Dates: start: 20060101

REACTIONS (2)
  - SYNCOPE [None]
  - GENERAL PHYSICAL HEALTH DETERIORATION [None]
